FAERS Safety Report 7462035-4 (Version None)
Quarter: 2011Q2

REPORT INFORMATION
  Report Type: 
  Country: None (occurrence: None)
  Receive Date: 20110506
  Receipt Date: 20110321
  Transmission Date: 20111010
  Serious: Yes (Other)
  Sender: FDA-Public Use
  Company Number: US-BAYER-2010-003105

PATIENT
  Sex: Female
  Weight: 68.027 kg

DRUGS (5)
  1. YAZ [Suspect]
     Indication: PRODUCT USED FOR UNKNOWN INDICATION
     Dosage: UNK
     Dates: start: 20080301
  2. LOESTRIN FE 1/20 [Concomitant]
  3. MIGRAINE HEADACHE MEDICATION [Concomitant]
  4. ALBUTEROL [Concomitant]
  5. VALTREX [Concomitant]
     Dosage: 500 MG, UNK

REACTIONS (3)
  - GALLBLADDER DISORDER [None]
  - GALLBLADDER INJURY [None]
  - CHOLECYSTITIS [None]
